FAERS Safety Report 20131282 (Version 1)
Quarter: 2021Q4

REPORT INFORMATION
  Report Type: Spontaneous
  Country: DE (occurrence: DE)
  Receive Date: 20211130
  Receipt Date: 20211130
  Transmission Date: 20220303
  Serious: Yes (Hospitalization, Other)
  Sender: FDA-Public Use
  Company Number: DE-ABBVIE-21K-062-4106707-00

PATIENT
  Sex: Female

DRUGS (20)
  1. METHOTREXATE [Suspect]
     Active Substance: METHOTREXATE
     Indication: Product used for unknown indication
     Dosage: UNK
     Route: 065
     Dates: start: 201609
  2. METHOTREXATE [Suspect]
     Active Substance: METHOTREXATE
     Dosage: 20 MILLIGRAM
     Route: 065
     Dates: start: 20151014
  3. METHOTREXATE [Suspect]
     Active Substance: METHOTREXATE
     Dosage: 25 MILLIGRAM
     Route: 065
     Dates: start: 20160209, end: 2016
  4. HUMIRA [Suspect]
     Active Substance: ADALIMUMAB
     Indication: Product used for unknown indication
     Dosage: UNK
     Route: 058
     Dates: start: 201707, end: 201802
  5. ABATACEPT [Suspect]
     Active Substance: ABATACEPT
     Indication: Product used for unknown indication
     Dosage: UNK
     Route: 065
  6. OTEZLA [Concomitant]
     Active Substance: APREMILAST
     Indication: Product used for unknown indication
     Dosage: UNK
     Dates: end: 2019
  7. OTEZLA [Concomitant]
     Active Substance: APREMILAST
     Dosage: 60 MILLIGRAM
     Dates: start: 2019
  8. OTEZLA [Concomitant]
     Active Substance: APREMILAST
     Dosage: 30 MILLIGRAM
     Dates: start: 2019, end: 2019
  9. PREDNISOLON                        /00016201/ [Concomitant]
     Indication: Abscess limb
     Dosage: UNK
     Dates: start: 20151014
  10. PREDNISOLON                        /00016201/ [Concomitant]
     Dosage: 30 MILLIGRAM
     Dates: start: 201907
  11. PREDNISOLON                        /00016201/ [Concomitant]
     Dosage: 40 MILLIGRAM
     Dates: start: 2018
  12. TOFACITINIB [Concomitant]
     Active Substance: TOFACITINIB
     Indication: Product used for unknown indication
     Dosage: UNK
     Dates: start: 201907, end: 2021
  13. DERMOXIN                           /00337102/ [Concomitant]
     Indication: Product used for unknown indication
     Dosage: UNK
     Dates: start: 201808, end: 2018
  14. COSENTYX [Concomitant]
     Active Substance: SECUKINUMAB
     Indication: Product used for unknown indication
     Dosage: UNK
     Dates: start: 201804, end: 201807
  15. PREDNISONE [Concomitant]
     Active Substance: PREDNISONE
     Indication: Product used for unknown indication
     Dosage: UNK
  16. CYCLOSPORINE [Concomitant]
     Active Substance: CYCLOSPORINE
     Indication: Product used for unknown indication
     Dosage: UNK
     Dates: start: 20151014
  17. METEX                              /00113802/ [Concomitant]
     Indication: Thyroid operation
     Dosage: 1 UNK, QW
     Route: 058
  18. METEX                              /00113802/ [Concomitant]
     Dosage: UNK
     Dates: start: 201605, end: 201605
  19. PREDNISONE [Concomitant]
     Active Substance: PREDNISONE
     Indication: Product used for unknown indication
     Dosage: UNK
  20. MINOCYCLINE [Concomitant]
     Active Substance: MINOCYCLINE HYDROCHLORIDE
     Indication: Product used for unknown indication
     Dosage: UNK
     Dates: start: 201808

REACTIONS (41)
  - Myalgia [Unknown]
  - Lymphadenopathy [Unknown]
  - Oropharyngeal pain [Unknown]
  - Ear discomfort [Unknown]
  - Chills [Unknown]
  - Perivascular dermatitis [Unknown]
  - Arthralgia [Unknown]
  - Hypertension [Unknown]
  - Pain in extremity [Unknown]
  - Ear swelling [Unknown]
  - Dactylitis [Unknown]
  - Musculoskeletal stiffness [Unknown]
  - Osteoarthritis [Unknown]
  - Pain in jaw [Unknown]
  - Abscess limb [Unknown]
  - Pyrexia [Unknown]
  - Anaphylactic reaction [Unknown]
  - Eczema [Unknown]
  - Pruritus [Unknown]
  - Nail disorder [Unknown]
  - Exfoliative rash [Unknown]
  - Herpes zoster [Unknown]
  - Therapeutic product effect incomplete [Unknown]
  - Parakeratosis [Unknown]
  - Urticaria [Unknown]
  - Pustule [Unknown]
  - Dehiscence [Unknown]
  - Antinuclear antibody increased [Unknown]
  - Dermatitis contact [Unknown]
  - Arthritis [Unknown]
  - Major depression [Unknown]
  - Pain [Unknown]
  - Joint swelling [Unknown]
  - Spinal disorder [Unknown]
  - Spinal pain [Unknown]
  - Lupus-like syndrome [Unknown]
  - Rheumatoid arthritis [Unknown]
  - Rash [Unknown]
  - Skin disorder [Unknown]
  - Pustular psoriasis [Unknown]
  - Tendon pain [Unknown]

NARRATIVE: CASE EVENT DATE: 20170901
